FAERS Safety Report 25293934 (Version 1)
Quarter: 2025Q2

REPORT INFORMATION
  Report Type: Spontaneous
  Country: US (occurrence: US)
  Receive Date: 20250510
  Receipt Date: 20250510
  Transmission Date: 20250717
  Serious: No
  Sender: SANOFI AVENTIS
  Company Number: US-SA-2025SA126345

PATIENT
  Sex: Female
  Weight: 102.51 kg

DRUGS (4)
  1. DUPIXENT [Suspect]
     Active Substance: DUPILUMAB
     Indication: Neurodermatitis
     Dosage: 300 MG, QOW
     Route: 058
     Dates: start: 20240814
  2. VITAMIN D2 [Concomitant]
     Active Substance: ERGOCALCIFEROL
  3. JARDIANCE [Concomitant]
     Active Substance: EMPAGLIFLOZIN
  4. PROZAC [Concomitant]
     Active Substance: FLUOXETINE HYDROCHLORIDE

REACTIONS (4)
  - Vitamin D decreased [Unknown]
  - Hyperglycaemia [Unknown]
  - Sleep apnoea syndrome [Unknown]
  - Full blood count increased [Unknown]
